FAERS Safety Report 4633562-X (Version None)
Quarter: 2005Q2

REPORT INFORMATION
  Report Type: 
  Country: None (occurrence: None)
  Receive Date: 20050411
  Receipt Date: 20050411
  Transmission Date: 20051028
  Serious: Yes (Hospitalization)
  Sender: FDA-Public Use
  Company Number: None

PATIENT
  Age: 53 Year
  Sex: Female
  Weight: 102.7 kg

DRUGS (12)
  1. ADRIAMYCIN PFS [Suspect]
     Indication: BREAST CANCER
     Dosage: 126 MG   Q3WKS  INTRAVENOU
     Route: 042
     Dates: start: 20050302, end: 20050323
  2. CYTOXAN [Suspect]
     Indication: BREAST CANCER
     Dosage: 1260 MG  Q3WKS  INTRAVENOU
     Route: 042
     Dates: start: 20050302, end: 20050323
  3. EFFEXOR [Concomitant]
  4. METOPROLOL TARTRATE [Concomitant]
  5. ASPIRIN [Concomitant]
  6. PROTONIX [Concomitant]
  7. ZOFRAN [Concomitant]
  8. DECADRON [Concomitant]
  9. IMITREX [Concomitant]
  10. COMPAZINE [Concomitant]
  11. ATIVAN [Concomitant]
  12. MAGIC MOUTHWASH [Concomitant]

REACTIONS (1)
  - FEBRILE NEUTROPENIA [None]
